FAERS Safety Report 6811267-4 (Version None)
Quarter: 2010Q2

REPORT INFORMATION
  Report Type: 
  Country: None (occurrence: None)
  Receive Date: 20100630
  Receipt Date: 20091112
  Transmission Date: 20101027
  Serious: No
  Sender: FDA-Public Use
  Company Number: US-AMGEN-KDL374654

PATIENT
  Sex: Male
  Weight: 74 kg

DRUGS (4)
  1. PROCRIT [Suspect]
     Indication: ANAEMIA OF MALIGNANT DISEASE
     Dates: start: 20091001
  2. GEMZAR [Concomitant]
  3. CARBOPLATIN [Concomitant]
  4. ZOMETA [Concomitant]

REACTIONS (1)
  - HAEMOGLOBIN INCREASED [None]
